FAERS Safety Report 5306877-X (Version None)
Quarter: 2007Q2

REPORT INFORMATION
  Report Type: 
  Country: None (occurrence: None)
  Receive Date: 20070425
  Receipt Date: 20070413
  Transmission Date: 20071010
  Serious: Yes (Other)
  Sender: FDA-Public Use
  Company Number: PHBS2007BR06682

PATIENT
  Age: 3 Year
  Sex: Male
  Weight: 14.5 kg

DRUGS (1)
  1. ZADITEN [Suspect]
     Indication: HYPERSENSITIVITY
     Dosage: 14 DRP, BID
     Route: 048
     Dates: start: 20070314, end: 20070413

REACTIONS (1)
  - SOMNOLENCE [None]
